FAERS Safety Report 15692879 (Version 1)
Quarter: 2018Q4

REPORT INFORMATION
  Report Type: Spontaneous
  Country: JP (occurrence: JP)
  Receive Date: 20181206
  Receipt Date: 20181206
  Transmission Date: 20190205
  Serious: Yes (Other)
  Sender: FDA-Public Use
  Company Number: JP-009507513-1712JPN002018J

PATIENT
  Age: 71 Year
  Sex: Male
  Weight: 55 kg

DRUGS (2)
  1. KEYTRUDA [Suspect]
     Active Substance: PEMBROLIZUMAB
     Dosage: 200 MILLIGRAM, Q3W
     Route: 041
     Dates: start: 20180314, end: 20181031
  2. KEYTRUDA [Suspect]
     Active Substance: PEMBROLIZUMAB
     Indication: NON-SMALL CELL LUNG CANCER
     Dosage: 200 MILLIGRAM, Q3W
     Route: 041
     Dates: start: 20171206, end: 20180117

REACTIONS (7)
  - Lower respiratory tract infection [Unknown]
  - Pyrexia [Recovering/Resolving]
  - Interstitial lung disease [Recovering/Resolving]
  - Onycholysis [Recovering/Resolving]
  - Diarrhoea [Recovered/Resolved]
  - Pneumonia [Not Recovered/Not Resolved]
  - Upper respiratory tract inflammation [Recovered/Resolved]

NARRATIVE: CASE EVENT DATE: 201712
